FAERS Safety Report 6138171-1 (Version None)
Quarter: 2009Q1

REPORT INFORMATION
  Report Type: 
  Country: None (occurrence: None)
  Receive Date: 20090331
  Receipt Date: 20090326
  Transmission Date: 20090719
  Serious: Yes (Other)
  Sender: FDA-Public Use
  Company Number: A0775257A

PATIENT
  Age: 52 Year
  Sex: Male

DRUGS (3)
  1. ALLI [Suspect]
     Indication: WEIGHT LOSS DIET
     Route: 048
     Dates: start: 20090317, end: 20090322
  2. LISINOPRIL [Concomitant]
  3. DOXYCYCLINE [Concomitant]
     Indication: ROSACEA

REACTIONS (7)
  - ABDOMINAL PAIN [None]
  - ABDOMINAL PAIN UPPER [None]
  - FLATULENCE [None]
  - FREQUENT BOWEL MOVEMENTS [None]
  - HAEMATOCHEZIA [None]
  - RECTAL DISCHARGE [None]
  - RECTAL HAEMORRHAGE [None]
